FAERS Safety Report 5302216-9 (Version None)
Quarter: 2007Q1

REPORT INFORMATION
  Report Type: 
  Country: None (occurrence: None)
  Receive Date: 20070201
  Receipt Date: 20061215
  Transmission Date: 20070707
  Serious: No
  Sender: FDA-Public Use
  Company Number: 2006PV026993

PATIENT
  Age: 51 Year
  Sex: Female
  Weight: 75.7507 kg

DRUGS (3)
  1. BYETTA [Suspect]
     Indication: DIABETES MELLITUS NON-INSULIN-DEPENDENT
     Dosage: 5 MCG; BID; SC
     Route: 058
     Dates: start: 20061215, end: 20061215
  2. METFORMIN HCL [Concomitant]
  3. AVANDIA [Concomitant]

REACTIONS (7)
  - BLOOD GLUCOSE INCREASED [None]
  - CHILLS [None]
  - DIARRHOEA [None]
  - DIZZINESS [None]
  - NAUSEA [None]
  - SKIN DISCOLOURATION [None]
  - VOMITING [None]
